FAERS Safety Report 8341127-1 (Version None)
Quarter: 2012Q2

REPORT INFORMATION
  Report Type: 
  Country: None (occurrence: None)
  Receive Date: 20120507
  Receipt Date: 20120501
  Transmission Date: 20120825
  Serious: Yes (Death, Hospitalization)
  Sender: FDA-Public Use
  Company Number: GB-GLAXOSMITHKLINE-B0799637A

PATIENT
  Sex: Male
  Weight: 95 kg

DRUGS (3)
  1. METFORMIN HCL [Concomitant]
     Indication: TYPE 2 DIABETES MELLITUS
     Dates: start: 19960901
  2. AVANDIA [Suspect]
     Indication: TYPE 2 DIABETES MELLITUS
     Dates: start: 20070801
  3. ANTIBIOTICS [Concomitant]

REACTIONS (16)
  - CARDIAC DISORDER [None]
  - CHRONIC OBSTRUCTIVE PULMONARY DISEASE [None]
  - OEDEMA [None]
  - DIABETIC MICROANGIOPATHY [None]
  - HYPERTENSION [None]
  - SCROTAL SWELLING [None]
  - CARDIOPULMONARY FAILURE [None]
  - PENILE SWELLING [None]
  - DYSPNOEA [None]
  - PULMONARY OEDEMA [None]
  - OEDEMA PERIPHERAL [None]
  - DYSLIPIDAEMIA [None]
  - ABDOMINAL DISTENSION [None]
  - RENAL FAILURE [None]
  - PULMONARY FUNCTION TEST DECREASED [None]
  - BRONCHOPNEUMONIA [None]
